FAERS Safety Report 19477705 (Version 1)
Quarter: 2021Q2

REPORT INFORMATION
  Report Type: Spontaneous
  Country: US (occurrence: US)
  Receive Date: 20210630
  Receipt Date: 20210630
  Transmission Date: 20210717
  Serious: No
  Sender: FDA-Public Use
  Company Number: None

PATIENT
  Age: 83 Year
  Sex: Male
  Weight: 44 kg

DRUGS (1)
  1. AMOXICILLIN/CLAVULANATE (AMOXICILLIN TRIHYDRATE 500MG/CLAVULANATE K 12 [Suspect]
     Active Substance: AMOXICILLIN\CLAVULANATE POTASSIUM
     Indication: URINARY TRACT INFECTION
     Dates: start: 20210115, end: 20210120

REACTIONS (3)
  - Acute kidney injury [None]
  - Hydronephrosis [None]
  - Abdominal discomfort [None]

NARRATIVE: CASE EVENT DATE: 20210127
